FAERS Safety Report 8470425-6 (Version None)
Quarter: 2012Q2

REPORT INFORMATION
  Report Type: 
  Country: None (occurrence: None)
  Receive Date: 20120627
  Receipt Date: 20120619
  Transmission Date: 20120825
  Serious: No
  Sender: FDA-Public Use
  Company Number: US-BAYER-2012-063037

PATIENT
  Sex: Male

DRUGS (3)
  1. CELEBREX [Concomitant]
  2. LEVITRA [Suspect]
     Indication: ERECTILE DYSFUNCTION
     Dosage: 20 MG, PRN
     Route: 048
  3. ASPIRIN [Concomitant]

REACTIONS (4)
  - SINUS CONGESTION [None]
  - DYSPNOEA [None]
  - HOT FLUSH [None]
  - DYSURIA [None]
